FAERS Safety Report 17473018 (Version 2)
Quarter: 2020Q1

REPORT INFORMATION
  Report Type: Spontaneous
  Country: CZ (occurrence: CZ)
  Receive Date: 20200228
  Receipt Date: 20200306
  Transmission Date: 20200409
  Serious: Yes (Other)
  Sender: FDA-Public Use
  Company Number: CZ-SA-2020SA037732

PATIENT
  Age: 71 Year
  Sex: Female
  Weight: 65 kg

DRUGS (5)
  1. CLEXANE [Suspect]
     Active Substance: ENOXAPARIN SODIUM
     Dosage: 5TH DOSE
     Route: 065
     Dates: start: 20200124, end: 20200124
  2. CLEXANE [Suspect]
     Active Substance: ENOXAPARIN SODIUM
     Indication: THROMBOSIS PROPHYLAXIS
     Dosage: 1ST DOSE
     Route: 065
     Dates: start: 20200122, end: 20200122
  3. CLEXANE [Suspect]
     Active Substance: ENOXAPARIN SODIUM
     Dosage: DOSE 4TH
     Route: 065
     Dates: start: 20200124, end: 20200124
  4. CLEXANE [Suspect]
     Active Substance: ENOXAPARIN SODIUM
     Dosage: 3RD DOSE
     Route: 065
     Dates: start: 20200123, end: 20200123
  5. CLEXANE [Suspect]
     Active Substance: ENOXAPARIN SODIUM
     Dosage: 2ND DOSE
     Route: 065
     Dates: start: 20200123, end: 20200123

REACTIONS (3)
  - Factor Xa activity increased [Unknown]
  - Pulmonary embolism [Unknown]
  - Suspected product quality issue [Unknown]

NARRATIVE: CASE EVENT DATE: 20200123
